FAERS Safety Report 20636595 (Version 1)
Quarter: 2022Q1

REPORT INFORMATION
  Report Type: Spontaneous
  Country: AU (occurrence: AU)
  Receive Date: 20220325
  Receipt Date: 20220325
  Transmission Date: 20220423
  Serious: Yes (Congenital Anomaly)
  Sender: FDA-Public Use
  Company Number: AU-VERTEX PHARMACEUTICALS-2022-004469

PATIENT
  Sex: Female

DRUGS (12)
  1. KALYDECO [Suspect]
     Active Substance: IVACAFTOR
     Indication: Cystic fibrosis
     Dosage: 150 MG TABLET, BID
     Route: 064
     Dates: start: 202006
  2. COLISTIN [Concomitant]
     Active Substance: COLISTIN
     Dosage: TWICE A DAY FOR 1 MONTH ALTERNATING WITH TOBI
  3. TOBI [Concomitant]
     Active Substance: TOBRAMYCIN
     Dosage: NEBS (ALTERNATING WITH COLISTIN)
  4. PULMOZYME [Concomitant]
     Active Substance: DORNASE ALFA
     Dosage: 2.5 MG, BID
  5. MUCOCLEAR [SODIUM CHLORIDE] [Concomitant]
     Dosage: 3 %, BID
  6. AZITHROMYCIN [Concomitant]
     Active Substance: AZITHROMYCIN
     Dosage: 250 MG, QD
  7. CREON [Concomitant]
     Active Substance: PANCRELIPASE AMYLASE\PANCRELIPASE LIPASE\PANCRELIPASE PROTEASE
     Dosage: APPROX. 30 UNITS PER DAY
  8. CHOLECALCIFEROL [Concomitant]
     Active Substance: CHOLECALCIFEROL
     Dosage: 1 DOSAGE FORM, QD
  9. ASCORBIC ACID\FERROUS SULFATE [Concomitant]
     Active Substance: ASCORBIC ACID\FERROUS SULFATE
     Dosage: 1 TABLET, BID
  10. VITABDECK [Concomitant]
     Dosage: 2 DOSAGE FORM, QD
  11. ZINC [Concomitant]
     Active Substance: ZINC
     Dosage: 1 DOSAGE FORM, QD
  12. CIPROFLOXACIN [Concomitant]
     Active Substance: CIPROFLOXACIN
     Dosage: 750 MG, BID

REACTIONS (1)
  - Transposition of the great vessels [Unknown]
